FAERS Safety Report 20962538 (Version 1)
Quarter: 2022Q2

REPORT INFORMATION
  Report Type: Spontaneous
  Country: US (occurrence: US)
  Receive Date: 20220615
  Receipt Date: 20220615
  Transmission Date: 20220721
  Serious: No
  Sender: FDA-Public Use
  Company Number: US-PROPHARMA-130

PATIENT
  Sex: Female

DRUGS (1)
  1. AYVAKIT [Suspect]
     Active Substance: AVAPRITINIB
     Indication: Systemic mastocytosis
     Route: 048
     Dates: start: 20220223

REACTIONS (5)
  - Increased tendency to bruise [Unknown]
  - Platelet count decreased [Unknown]
  - Hair colour changes [Unknown]
  - Alopecia [Unknown]
  - Arthritis [Unknown]
